FAERS Safety Report 15683912 (Version 1)
Quarter: 2018Q4

REPORT INFORMATION
  Report Type: Spontaneous
  Country: CA (occurrence: CA)
  Receive Date: 20181204
  Receipt Date: 20181204
  Transmission Date: 20190205
  Serious: Yes (Hospitalization, Other)
  Sender: FDA-Public Use
  Company Number: CA-TEVA-2018-CA-983279

PATIENT
  Age: 45 Year
  Sex: Male

DRUGS (7)
  1. VITAMIN K [Concomitant]
     Active Substance: PHYTONADIONE
     Route: 065
  2. VITAMIN D [Concomitant]
     Active Substance: CHOLECALCIFEROL
     Route: 065
  3. AZATHIOPRINE. [Suspect]
     Active Substance: AZATHIOPRINE
     Indication: CRONKHITE-CANADA SYNDROME
     Route: 065
  4. PREDNISONE. [Suspect]
     Active Substance: PREDNISONE
     Indication: CRONKHITE-CANADA SYNDROME
     Route: 065
  5. CALCIUM [Concomitant]
     Active Substance: CALCIUM
     Indication: CRONKHITE-CANADA SYNDROME
     Route: 065
  6. COTRIMOXAZOLE [Concomitant]
     Active Substance: SULFAMETHOXAZOLE\TRIMETHOPRIM
     Dosage: 3 TIME A WEEK
     Route: 065
  7. IRON [Concomitant]
     Active Substance: IRON
     Indication: MICROCYTIC ANAEMIA
     Route: 065

REACTIONS (2)
  - Treatment failure [Unknown]
  - Hepatocellular injury [Recovering/Resolving]
